FAERS Safety Report 8469556-6 (Version None)
Quarter: 2012Q2

REPORT INFORMATION
  Report Type: 
  Country: None (occurrence: None)
  Receive Date: 20120626
  Receipt Date: 20120612
  Transmission Date: 20120825
  Serious: Yes (Other)
  Sender: FDA-Public Use
  Company Number: US-ROCHE-1078174

PATIENT
  Sex: Female
  Weight: 56.75 kg

DRUGS (5)
  1. ZOMETA [Concomitant]
     Indication: BONE LOSS
     Route: 042
     Dates: start: 20031201
  2. FEMARA [Concomitant]
     Route: 048
     Dates: start: 20030101
  3. PERCOCET [Concomitant]
     Indication: PAIN
     Route: 048
  4. SALAGEN [Concomitant]
     Indication: DRY MOUTH
     Route: 048
  5. HERCEPTIN [Suspect]
     Indication: BREAST CANCER METASTATIC
     Route: 042
     Dates: start: 20040101

REACTIONS (8)
  - FATIGUE [None]
  - LOOSE TOOTH [None]
  - MITRAL VALVE INCOMPETENCE [None]
  - VOCAL CORD PARALYSIS [None]
  - ARTHROPATHY [None]
  - COUGH [None]
  - NECK PAIN [None]
  - DYSPHONIA [None]
